FAERS Safety Report 6999065-2 (Version None)
Quarter: 2010Q3

REPORT INFORMATION
  Report Type: 
  Country: None (occurrence: None)
  Receive Date: 20100920
  Receipt Date: 20100915
  Transmission Date: 20110219
  Serious: Yes (Hospitalization, Other)
  Sender: FDA-Public Use
  Company Number: US-ASTRAZENECA-2007UW14066

PATIENT
  Age: 50 Year
  Sex: Female
  Weight: 89.8 kg

DRUGS (27)
  1. SEROQUEL [Suspect]
     Indication: DEPRESSION
     Route: 048
     Dates: start: 19990616, end: 20041228
  2. SEROQUEL [Suspect]
     Indication: ANXIETY
     Route: 048
     Dates: start: 19990616, end: 20041228
  3. SEROQUEL [Suspect]
     Dosage: 25-100 MG
     Route: 048
     Dates: start: 19990101, end: 20030101
  4. SEROQUEL [Suspect]
     Dosage: 25-100 MG
     Route: 048
     Dates: start: 19990101, end: 20030101
  5. SEROQUEL [Suspect]
     Route: 048
     Dates: start: 19990101, end: 20040101
  6. SEROQUEL [Suspect]
     Route: 048
     Dates: start: 19990101, end: 20040101
  7. LYRICA [Concomitant]
     Indication: PERIPHERAL SENSORY NEUROPATHY
     Dosage: 150-300 MG
     Dates: start: 20060117
  8. EFFEXOR [Concomitant]
     Dosage: 75-225 MG, DAILY
     Dates: start: 20050101
  9. EFFEXOR [Concomitant]
     Dates: start: 19990101, end: 20020101
  10. XENICAL [Concomitant]
     Route: 048
     Dates: start: 20040101, end: 20040802
  11. XENICAL [Concomitant]
     Route: 048
     Dates: start: 20050101
  12. LORCET-HD [Concomitant]
     Indication: PAIN
     Dosage: 20-120 MG ONE EVERY SIX HOURS, 7.5/650, EVERY FOUR HOURS
     Route: 048
     Dates: start: 20050101
  13. FLEXERIL [Concomitant]
     Indication: MUSCLE SPASMS
     Dates: start: 20040101
  14. BENICAR [Concomitant]
     Indication: BLOOD PRESSURE
     Dosage: 20-40 MG ONCE A DAY, 40/25 DAILY
     Route: 048
     Dates: start: 20010101
  15. PLAVIX [Concomitant]
     Route: 048
     Dates: start: 20060101
  16. CADUET [Concomitant]
     Dosage: 5/40 AT BED TIME
     Route: 048
     Dates: start: 20060101
  17. FUROSEMIDE [Concomitant]
     Dosage: 20 MG, ONE TO TWO DAILY
     Route: 048
     Dates: start: 20030101, end: 20040614
  18. GLUCOPHAGE [Concomitant]
     Dosage: 1000-1500 MG
     Dates: start: 20050101
  19. PROTONIX [Concomitant]
     Dates: start: 20030101
  20. AVALIDE [Concomitant]
     Indication: HYPERTENSION
     Dosage: 150 MG DAILY, 300/12.5 DAILY
     Dates: start: 20030101
  21. PEPCID [Concomitant]
     Dates: start: 20050101
  22. NEXIUM [Concomitant]
     Dates: start: 20030101
  23. TRAZODONE HCL [Concomitant]
     Dates: start: 20050101
  24. METOPROLOL [Concomitant]
     Route: 048
     Dates: start: 20050923
  25. LORAZEPAM [Concomitant]
     Indication: ANXIETY
     Dates: start: 20060101
  26. LORAZEPAM [Concomitant]
     Dates: start: 20050101, end: 20060101
  27. ELAVIL [Concomitant]
     Dosage: 25-75 MG
     Dates: start: 20050101

REACTIONS (21)
  - ANGINA PECTORIS [None]
  - BLOOD CHOLESTEROL INCREASED [None]
  - CARDIAC DISORDER [None]
  - DIABETES MELLITUS INADEQUATE CONTROL [None]
  - DIABETIC COMA [None]
  - DIABETIC GASTROPARESIS [None]
  - DIABETIC KETOACIDOSIS [None]
  - DYSPNOEA [None]
  - FIBROMYALGIA [None]
  - GLUCOSE TOLERANCE IMPAIRED [None]
  - GLYCOSURIA [None]
  - HYPERGLYCAEMIA [None]
  - HYPERLIPIDAEMIA [None]
  - HYPOGLYCAEMIA [None]
  - NEUROPATHY PERIPHERAL [None]
  - OBESITY [None]
  - POLYMYALGIA RHEUMATICA [None]
  - SURGERY [None]
  - TARDIVE DYSKINESIA [None]
  - TYPE 2 DIABETES MELLITUS [None]
  - VISION BLURRED [None]
